FAERS Safety Report 12871259 (Version 1)
Quarter: 2016Q4

REPORT INFORMATION
  Report Type: Spontaneous
  Country: US (occurrence: US)
  Receive Date: 20161021
  Receipt Date: 20161021
  Transmission Date: 20170207
  Serious: No
  Sender: FDA-Public Use
  Company Number: None

PATIENT
  Sex: Female

DRUGS (1)
  1. CEFDINIR. [Suspect]
     Active Substance: CEFDINIR
     Dosage: ELIXIR

REACTIONS (2)
  - Drug dispensing error [None]
  - Accidental overdose [None]

NARRATIVE: CASE EVENT DATE: 2016
